FAERS Safety Report 8506051-X (Version None)
Quarter: 2012Q3

REPORT INFORMATION
  Report Type: 
  Country: None (occurrence: None)
  Receive Date: 20120712
  Receipt Date: 20120627
  Transmission Date: 20120928
  Serious: Yes (Hospitalization)
  Sender: FDA-Public Use
  Company Number: DE-PFIZER INC-DE-WYE-H06020708

PATIENT
  Sex: Male
  Weight: 84 kg

DRUGS (11)
  1. PROGRAF [Concomitant]
     Indication: IMMUNOSUPPRESSION
     Dosage: TWICE DAILY
     Dates: start: 20071107
  2. RAMIPRIL [Concomitant]
     Dosage: UNK
  3. ACETYLSALICYLIC ACID [Concomitant]
     Dosage: UNK
  4. PANTOPRAZOLE [Concomitant]
     Dosage: UNK
  5. AMLODIPINE [Concomitant]
     Indication: HYPERTENSION
     Dosage: 5 MG, 1X/DAY
  6. H-BIG [Concomitant]
     Dosage: UNK
  7. URSO FALK [Concomitant]
     Indication: PROPHYLAXIS
     Dosage: 400 MG, 2X/DAY
  8. LAMIVUDINE [Concomitant]
     Indication: HEPATITIS B
     Dosage: 150 MG, 1X/DAY
  9. SIROLIMUS [Suspect]
     Indication: PROPHYLAXIS AGAINST TRANSPLANT REJECTION
     Dosage: 3.0 MG, 1X/DAY
     Route: 048
     Dates: start: 20071227, end: 20080908
  10. CONCOR [Concomitant]
     Indication: HYPERTENSION
     Dosage: 5 MG, 1X/DAY
  11. TORSEMIDE [Concomitant]
     Indication: HYPERTENSION
     Dosage: 5 MG, 1X/DAY

REACTIONS (4)
  - UPPER GASTROINTESTINAL HAEMORRHAGE [None]
  - OEDEMA [None]
  - APHTHOUS STOMATITIS [None]
  - PROTEINURIA [None]
